FAERS Safety Report 9037156 (Version 3)
Quarter: 2013Q2

REPORT INFORMATION
  Report Type: Spontaneous
  Country: US (occurrence: None)
  Receive Date: 20130109
  Receipt Date: 20130409
  Transmission Date: 20140414
  Serious: Yes (Death, Hospitalization)
  Sender: FDA-Public Use
  Company Number: 2012PROUSA02424

PATIENT
  Age: 56 Year
  Sex: Male
  Weight: 81.6 kg

DRUGS (1)
  1. PROVENGE (SIPULEUCEL-T) SUSPENSION, 250ML [Suspect]
     Indication: PROSTATE CANCER METASTATIC
     Route: 042
     Dates: start: 20121207, end: 20121207

REACTIONS (12)
  - Pneumonia [None]
  - Device occlusion [None]
  - Pneumococcal sepsis [None]
  - Mental status changes [None]
  - Heart rate increased [None]
  - General physical health deterioration [None]
  - Pneumothorax [None]
  - Agitation [None]
  - Shock [None]
  - Disseminated intravascular coagulation [None]
  - Pancytopenia [None]
  - Respiratory failure [None]
